FAERS Safety Report 20094383 (Version 2)
Quarter: 2021Q4

REPORT INFORMATION
  Report Type: Spontaneous
  Country: CZ (occurrence: CZ)
  Receive Date: 20211122
  Receipt Date: 20211209
  Transmission Date: 20220303
  Serious: Yes (Hospitalization, Other)
  Sender: FDA-Public Use
  Company Number: CZ-BoehringerIngelheim-2021-BI-138363

PATIENT
  Age: 90 Year
  Sex: Male

DRUGS (6)
  1. PRADAXA [Suspect]
     Active Substance: DABIGATRAN ETEXILATE MESYLATE
     Indication: Atrial fibrillation
     Dosage: 1-0-1
     Route: 048
  2. SOLIFENACIN;TAMSULOSIN [Concomitant]
     Indication: Product used for unknown indication
     Dosage: 0-0-1?SOLIFENACIN 6 MG/TAMSULOSIN 0.4 MG
  3. FENOFIBRATE [Concomitant]
     Active Substance: FENOFIBRATE
     Indication: Product used for unknown indication
     Dosage: 1-0-0
  4. BETAHISTINE [Concomitant]
     Active Substance: BETAHISTINE
     Indication: Product used for unknown indication
     Dosage: 1-0-0
  5. OMEPRAZOLE [Concomitant]
     Active Substance: OMEPRAZOLE
     Indication: Product used for unknown indication
     Dosage: 0-0-1
  6. DIOSMIN [Concomitant]
     Active Substance: DIOSMIN
     Indication: Product used for unknown indication
     Dosage: COMBINATION 2-0-0

REACTIONS (4)
  - Urinary tract infection [Unknown]
  - Confusional state [Unknown]
  - Pyrexia [Unknown]
  - Renal impairment [Unknown]
